FAERS Safety Report 9922566 (Version 1)
Quarter: 2014Q1

REPORT INFORMATION
  Report Type: Spontaneous
  Country: GB (occurrence: GB)
  Receive Date: 20140225
  Receipt Date: 20140225
  Transmission Date: 20141002
  Serious: Yes (Other)
  Sender: FDA-Public Use
  Company Number: GB-TEVA-462466ISR

PATIENT
  Sex: Male

DRUGS (2)
  1. METHOTREXATE [Suspect]
  2. LAMOTRIGINE [Interacting]
     Indication: EPILEPSY

REACTIONS (2)
  - Convulsion [Unknown]
  - Drug interaction [Unknown]
